FAERS Safety Report 10683112 (Version 2)
Quarter: 2015Q1

REPORT INFORMATION
  Report Type: Spontaneous
  Country: US (occurrence: US)
  Receive Date: 20141230
  Receipt Date: 20150220
  Transmission Date: 20150720
  Serious: No
  Sender: FDA-Public Use
  Company Number: US-GLAXOSMITHKLINE-US2014GSK036086

PATIENT
  Age: 69 Year
  Sex: Female

DRUGS (10)
  1. ADVAIR DISKUS [Suspect]
     Active Substance: FLUTICASONE PROPIONATE\SALMETEROL XINAFOATE
     Indication: ASTHMA
  2. ADVAIR DISKUS [Suspect]
     Active Substance: FLUTICASONE PROPIONATE\SALMETEROL XINAFOATE
     Indication: BRONCHITIS CHRONIC
  3. TOPIRAMATE. [Concomitant]
     Active Substance: TOPIRAMATE
  4. HYDROCODONE [Concomitant]
     Active Substance: HYDROCODONE
  5. SPIRIVA [Concomitant]
     Active Substance: TIOTROPIUM BROMIDE MONOHYDRATE
  6. ALBUTEROL NEBULIZER [Concomitant]
     Active Substance: ALBUTEROL
  7. MORPHINE SULFATE. [Concomitant]
     Active Substance: MORPHINE SULFATE
  8. ADVAIR DISKUS [Suspect]
     Active Substance: FLUTICASONE PROPIONATE\SALMETEROL XINAFOATE
     Indication: CHRONIC OBSTRUCTIVE PULMONARY DISEASE
     Dosage: 1 PUFF(S), BID
     Dates: start: 201411
  9. GABAPENTIN. [Concomitant]
     Active Substance: GABAPENTIN
  10. BUPROPION XL [Concomitant]
     Active Substance: BUPROPION

REACTIONS (6)
  - Product odour abnormal [Recovered/Resolved]
  - Product taste abnormal [Recovered/Resolved]
  - Dyspepsia [Recovered/Resolved]
  - Secretion discharge [Recovered/Resolved]
  - Product quality issue [Unknown]
  - Pulmonary pain [Recovered/Resolved]

NARRATIVE: CASE EVENT DATE: 201411
